FAERS Safety Report 9781089 (Version 1)
Quarter: 2013Q4

REPORT INFORMATION
  Report Type: Spontaneous
  Country: US (occurrence: None)
  Receive Date: 20131220
  Receipt Date: 20131220
  Transmission Date: 20140711
  Serious: Yes (Other)
  Sender: FDA-Public Use
  Company Number: 2013120056

PATIENT
  Age: 35 Year
  Sex: Female
  Weight: 104.33 kg

DRUGS (5)
  1. FEOSOL FERROUS SULFATE IRON [Suspect]
     Indication: ANAEMIA POSTOPERATIVE
     Dosage: 65 MG, 1 IN 1 D
     Route: 048
     Dates: start: 20131211, end: 20131213
  2. BENADRYL [Suspect]
     Indication: URTICARIA
     Route: 042
     Dates: start: 20131213, end: 20131213
  3. GENTAMICIN [Concomitant]
  4. ATIVAN [Concomitant]
  5. SYNTHROID [Concomitant]

REACTIONS (3)
  - Urticaria [None]
  - Anaphylactic reaction [None]
  - Throat tightness [None]
